FAERS Safety Report 5473988-8 (Version None)
Quarter: 2007Q3

REPORT INFORMATION
  Report Type: 
  Country: None (occurrence: None)
  Receive Date: 20070830
  Receipt Date: 20070323
  Transmission Date: 20080115
  Serious: Yes (Other)
  Sender: FDA-Public Use
  Company Number: 238385

PATIENT
  Age: 63 Year
  Sex: Female
  Weight: 62.1 kg

DRUGS (10)
  1. XOLAIR [Suspect]
     Indication: ASTHMA
     Dosage: 375 MG, Q2W, SUBCUTANEOUS
     Route: 058
     Dates: start: 20040802, end: 20070222
  2. CLARINEX [Concomitant]
  3. NASONEX [Concomitant]
  4. VERAPAMIL (VERAPAMIL HYDROCHLORIDE) [Concomitant]
  5. LISINOPRIL [Concomitant]
  6. FOSAMAX [Concomitant]
  7. ADVAIR DISKUS 100/50 [Concomitant]
  8. EC-ASA (ASPIRIN) [Concomitant]
  9. ALBUTEROL (ALBUTEROL/ALBUTEROL SULFATE) [Concomitant]
  10. ATROVENT [Concomitant]

REACTIONS (2)
  - LIP SWELLING [None]
  - PHARYNGEAL OEDEMA [None]
